FAERS Safety Report 17188212 (Version 5)
Quarter: 2020Q4

REPORT INFORMATION
  Report Type: Report from Study
  Country: US (occurrence: US)
  Receive Date: 20191221
  Receipt Date: 20201010
  Transmission Date: 20210113
  Serious: No
  Sender: FDA-Public Use
  Company Number: US-SHIRE-US201942508

PATIENT
  Age: 4 Year
  Sex: Male
  Weight: 23.95 kg

DRUGS (2)
  1. ELAPRASE [Suspect]
     Active Substance: IDURSULFASE
     Indication: MUCOPOLYSACCHARIDOSIS II
     Dosage: 18 MILLIGRAM, 1X/WEEK
     Route: 042
     Dates: start: 20181201
  2. ELAPRASE [Suspect]
     Active Substance: IDURSULFASE
     Dosage: 18 MILLIGRAM, 1X/WEEK
     Route: 042
     Dates: start: 2019

REACTIONS (6)
  - Product dose omission issue [Unknown]
  - Body temperature increased [Unknown]
  - Nasal congestion [Unknown]
  - Product use issue [Unknown]
  - Illness [Not Recovered/Not Resolved]
  - Illness [Unknown]

NARRATIVE: CASE EVENT DATE: 20191202
